FAERS Safety Report 19747091 (Version 1)
Quarter: 2021Q3

REPORT INFORMATION
  Report Type: Spontaneous
  Country: US (occurrence: US)
  Receive Date: 20210825
  Receipt Date: 20210825
  Transmission Date: 20211014
  Serious: No
  Sender: FDA-Public Use
  Company Number: US-GALDERMA-US2021015637

PATIENT

DRUGS (6)
  1. PROACTIV MD ULTRA GENTLE CLEANSER [Concomitant]
     Dosage: 1 DOSAGE FORM, BID
     Route: 061
  2. PROACTIV MD ADAPALENE ACNE TREATMENT [Suspect]
     Active Substance: ADAPALENE
     Dosage: 1 DOSAGE FORM, BID
     Route: 061
  3. PROACTIV MD ULTRA GENTLE CLEANSER [Concomitant]
     Indication: ACNE
     Dosage: 1 DOSAGE FORM, QD
     Route: 061
  4. PROACTIV MD ADAPALENE ACNE TREATMENT [Suspect]
     Active Substance: ADAPALENE
     Indication: ACNE
     Dosage: 1 DOSAGE FORM, QD
     Route: 061
  5. PROACTIV MD ULTRA HYDRATING MOISTURIZER [Concomitant]
     Indication: ACNE
     Dosage: 1 DOSAGE FORM, QD
     Route: 061
  6. PROACTIV MD ULTRA HYDRATING MOISTURIZER [Concomitant]
     Dosage: 1 DOSAGE FORM, BID
     Route: 061

REACTIONS (7)
  - Pain of skin [Unknown]
  - Hypersensitivity [Unknown]
  - Inappropriate schedule of product administration [Recovered/Resolved]
  - Skin burning sensation [Unknown]
  - Acne [Unknown]
  - Rash erythematous [Unknown]
  - Overdose [Recovered/Resolved]
